FAERS Safety Report 8407635-X (Version None)
Quarter: 2012Q2

REPORT INFORMATION
  Report Type: 
  Country: None (occurrence: None)
  Receive Date: 20120604
  Receipt Date: 20120529
  Transmission Date: 20120825
  Serious: Yes (Hospitalization)
  Sender: FDA-Public Use
  Company Number: DK-CELGENEUS-044-20785-12022953

PATIENT
  Sex: Female

DRUGS (14)
  1. THALIDOMIDE [Suspect]
     Indication: MULTIPLE MYELOMA
     Route: 048
     Dates: start: 20100826
  2. THALIDOMIDE [Suspect]
     Dosage: 100 MILLIGRAM
     Route: 048
     Dates: end: 20101116
  3. ARANESP [Concomitant]
     Indication: ANAEMIA
     Route: 065
  4. PROPRANOLOL [Concomitant]
     Indication: HYPERTENSION
     Route: 065
  5. THALIDOMIDE [Suspect]
     Dosage: DOSE REDUCED
     Route: 048
     Dates: start: 20100901, end: 20100923
  6. PREDNISONE [Suspect]
     Indication: MULTIPLE MYELOMA
     Route: 048
     Dates: start: 20100826
  7. MELPHALAN [Suspect]
     Route: 048
     Dates: end: 20110621
  8. PREDNISONE [Suspect]
     Route: 048
     Dates: end: 20110621
  9. METFORMIN HCL [Concomitant]
     Indication: DIABETES MELLITUS
     Route: 065
  10. ACYCLOVIR [Concomitant]
     Indication: PROPHYLAXIS
     Route: 065
  11. MELPHALAN [Suspect]
     Route: 048
     Dates: start: 20110303, end: 20110306
  12. CENTYL [Concomitant]
     Indication: HYPERTENSION
     Route: 065
  13. MELPHALAN [Suspect]
     Indication: MULTIPLE MYELOMA
     Route: 048
     Dates: start: 20100826
  14. PREDNISONE [Suspect]
     Route: 048
     Dates: start: 20110303, end: 20110306

REACTIONS (1)
  - UTERINE CANCER [None]
